FAERS Safety Report 14105867 (Version 1)
Quarter: 2017Q4

REPORT INFORMATION
  Report Type: Spontaneous
  Country: US (occurrence: US)
  Receive Date: 20171018
  Receipt Date: 20171018
  Transmission Date: 20180321
  Serious: No
  Sender: FDA-Public Use
  Company Number: US-AMGEN-USASP2016143346

PATIENT
  Age: 87 Year
  Sex: Female

DRUGS (1)
  1. PROLIA [Suspect]
     Active Substance: DENOSUMAB
     Indication: OSTEOPOROSIS POSTMENOPAUSAL
     Dosage: UNK UNK, UNK
     Route: 065
     Dates: start: 2014

REACTIONS (9)
  - Pain in jaw [Unknown]
  - Jaw disorder [Unknown]
  - Kyphosis [Unknown]
  - Rash erythematous [Unknown]
  - Gingival pain [Unknown]
  - Dental caries [Unknown]
  - Stress [Unknown]
  - Musculoskeletal discomfort [Unknown]
  - Rash pruritic [Unknown]
